FAERS Safety Report 18760520 (Version 1)
Quarter: 2021Q1

REPORT INFORMATION
  Report Type: Spontaneous
  Country: US (occurrence: US)
  Receive Date: 20210120
  Receipt Date: 20210120
  Transmission Date: 20210419
  Serious: No
  Sender: FDA-Public Use
  Company Number: US-009507513-2101USA001327

PATIENT
  Sex: Female

DRUGS (2)
  1. FOSAMAX [Suspect]
     Active Substance: ALENDRONATE SODIUM
     Indication: BACK PAIN
     Dosage: 1 DOSAGE FORM, QD (REPORTED AS ONCE A DAY THEN CHANGED TO ONCE A WEEK SEVERAL YEARS LATER)
     Route: 048
  2. FOSAMAX [Suspect]
     Active Substance: ALENDRONATE SODIUM
     Dosage: 1 DOSAGE FORM, QW (REPORTED AS ONCE A DAY THEN CHANGED TO ONCE A WEEK SEVERAL YEARS LATER)
     Route: 048

REACTIONS (3)
  - Tooth extraction [Unknown]
  - Toothache [Unknown]
  - Inappropriate schedule of product administration [Unknown]

NARRATIVE: CASE EVENT DATE: 202012
